FAERS Safety Report 25452703 (Version 2)
Quarter: 2025Q3

REPORT INFORMATION
  Report Type: Spontaneous
  Country: US (occurrence: US)
  Receive Date: 20250618
  Receipt Date: 20250707
  Transmission Date: 20251021
  Serious: No
  Sender: CALLIDITAS THERAPEUTICS AB
  Company Number: US-Calliditas-2025CAL01543

PATIENT
  Age: 27 Year
  Sex: Female

DRUGS (9)
  1. TARPEYO [Suspect]
     Active Substance: BUDESONIDE
     Indication: IgA nephropathy
     Route: 048
     Dates: start: 20250516
  2. WELLBUTRIN XL [Concomitant]
     Active Substance: BUPROPION HYDROCHLORIDE
  3. EZETIMIBE\SIMVASTATIN [Concomitant]
     Active Substance: EZETIMIBE\SIMVASTATIN
  4. PROZAC [Concomitant]
     Active Substance: FLUOXETINE HYDROCHLORIDE
  5. JARDIANCE [Concomitant]
     Active Substance: EMPAGLIFLOZIN
  6. LISINOPRIL [Concomitant]
     Active Substance: LISINOPRIL
  7. ATOMOXETINE [Concomitant]
     Active Substance: ATOMOXETINE
  8. ADVAIR HFA [Concomitant]
     Active Substance: FLUTICASONE PROPIONATE\SALMETEROL XINAFOATE
  9. ZYRTEC [Concomitant]
     Active Substance: CETIRIZINE HYDROCHLORIDE

REACTIONS (6)
  - Temperature regulation disorder [Recovered/Resolved]
  - Hot flush [Recovered/Resolved]
  - Cold sweat [Recovered/Resolved]
  - Headache [Recovered/Resolved]
  - Chromaturia [Unknown]
  - Muscle twitching [Not Recovered/Not Resolved]

NARRATIVE: CASE EVENT DATE: 20250501
